FAERS Safety Report 5600044-8 (Version None)
Quarter: 2007Q4

REPORT INFORMATION
  Report Type: 
  Country: None (occurrence: None)
  Receive Date: 20071226
  Receipt Date: 20070629
  Transmission Date: 20080405
  Serious: Yes (Life-Threatening, Hospitalization)
  Sender: FDA-Public Use
  Company Number: 2007-0011855

PATIENT
  Age: 50 Year
  Sex: Male

DRUGS (5)
  1. VIREAD [Suspect]
     Indication: HIV INFECTION
     Dosage: 300 MG, 1 IN 1 D, ORAL
     Route: 048
     Dates: end: 20040501
  2. DDI IDIDANOSINE) [Concomitant]
  3. TMP/SULFA (BACATRIM) [Concomitant]
  4. ABC (ABACAVIR) [Concomitant]
  5. LPV/R (KALETRA) [Concomitant]

REACTIONS (1)
  - BLOOD CREATININE INCREASED [None]
